FAERS Safety Report 4432941-3 (Version None)
Quarter: 2004Q3

REPORT INFORMATION
  Report Type: 
  Country: None (occurrence: None)
  Receive Date: 20040726
  Receipt Date: 20040409
  Transmission Date: 20050211
  Serious: No
  Sender: FDA-Public Use
  Company Number: USA040463944

PATIENT
  Age: 82 Year
  Sex: Female
  Weight: 41 kg

DRUGS (4)
  1. FORTEO [Suspect]
     Indication: OSTEOPOROSIS
     Dosage: 20 UG/ 1 DAY
     Dates: start: 20031221
  2. CALCIUM WITH VITAMIN D [Concomitant]
  3. COUMADIN [Concomitant]
  4. PROCRIT (ERYTHROPOIETIN) [Concomitant]

REACTIONS (5)
  - ASTHENIA [None]
  - BONE PAIN [None]
  - DYSPNOEA [None]
  - MUSCLE SPASMS [None]
  - NERVOUSNESS [None]
